FAERS Safety Report 17950884 (Version 1)
Quarter: 2020Q2

REPORT INFORMATION
  Report Type: Spontaneous
  Country: US (occurrence: US)
  Receive Date: 20200626
  Receipt Date: 20200626
  Transmission Date: 20200714
  Serious: No
  Sender: FDA-Public Use
  Company Number: US-BEH-2020119181

PATIENT
  Age: 16 Year
  Sex: Female

DRUGS (9)
  1. HIZENTRA [Suspect]
     Active Substance: HUMAN IMMUNOGLOBULIN G
     Dosage: 1 GRAM (5 ML)
     Route: 058
  2. CONCERTA [Concomitant]
     Active Substance: METHYLPHENIDATE HYDROCHLORIDE
  3. HIZENTRA [Suspect]
     Active Substance: HUMAN IMMUNOGLOBULIN G
     Dosage: 10 GRAM (50 ML)
     Route: 058
  4. NORETHINDRONE [NORETHISTERONE] [Concomitant]
     Active Substance: NORETHINDRONE
  5. NEXIUM I.V. [Concomitant]
     Active Substance: ESOMEPRAZOLE SODIUM
  6. HIZENTRA [Suspect]
     Active Substance: HUMAN IMMUNOGLOBULIN G
     Indication: IMMUNODEFICIENCY COMMON VARIABLE
     Dosage: 75 MILLILITER (1GM/5ML,4GM/20ML,10GM/50ML), QOW
     Route: 058
     Dates: start: 20191226
  7. HIZENTRA [Suspect]
     Active Substance: HUMAN IMMUNOGLOBULIN G
     Dosage: 4 GRAM (20 ML)
     Route: 058
  8. EFEXOR [Concomitant]
     Active Substance: VENLAFAXINE HYDROCHLORIDE
  9. KEPPRA [Concomitant]
     Active Substance: LEVETIRACETAM

REACTIONS (5)
  - Infusion site swelling [Not Recovered/Not Resolved]
  - Infusion site pain [Not Recovered/Not Resolved]
  - Infusion site atrophy [Not Recovered/Not Resolved]
  - Strangury [Not Recovered/Not Resolved]
  - Infusion site haemorrhage [Not Recovered/Not Resolved]

NARRATIVE: CASE EVENT DATE: 20200621
